FAERS Safety Report 10955602 (Version 1)
Quarter: 2015Q1

REPORT INFORMATION
  Report Type: Spontaneous
  Country: US (occurrence: None)
  Receive Date: 20150325
  Receipt Date: 20150325
  Transmission Date: 20150721
  Serious: No
  Sender: FDA-Public Use
  Company Number: None

PATIENT
  Age: 17 Year
  Sex: Male
  Weight: 64.5 kg

DRUGS (5)
  1. CYCLOPHOSPHAMIDE. [Suspect]
     Active Substance: CYCLOPHOSPHAMIDE
     Dates: start: 20150127
  2. METHOTREXATE [Suspect]
     Active Substance: METHOTREXATE
     Dates: start: 20150126
  3. PREDNISONE. [Suspect]
     Active Substance: PREDNISONE
     Dates: start: 20150129
  4. HYDROCORTISONE. [Suspect]
     Active Substance: HYDROCORTISONE
     Dates: start: 20150126
  5. VINCRISTINE SULFATE. [Suspect]
     Active Substance: VINCRISTINE SULFATE
     Dates: start: 20150127

REACTIONS (2)
  - Alanine aminotransferase increased [None]
  - Gamma-glutamyltransferase increased [None]

NARRATIVE: CASE EVENT DATE: 20150202
